FAERS Safety Report 11491640 (Version 3)
Quarter: 2015Q4

REPORT INFORMATION
  Report Type: Spontaneous
  Country: JP (occurrence: JP)
  Receive Date: 20150910
  Receipt Date: 20151030
  Transmission Date: 20160304
  Serious: Yes (Death, Life-Threatening, Hospitalization, Other)
  Sender: FDA-Public Use
  Company Number: JP-BRISTOL-MYERS SQUIBB COMPANY-BMS-2015-048040

PATIENT
  Age: 79 Year
  Sex: Male
  Weight: 38.6 kg

DRUGS (14)
  1. CLOPIDOGREL SULFATE [Concomitant]
     Active Substance: CLOPIDOGREL BISULFATE
     Indication: PERCUTANEOUS CORONARY INTERVENTION
     Dosage: 75 MG, QD
     Route: 048
  2. MAPROTILINE HYDROCHLORIDE. [Concomitant]
     Active Substance: MAPROTILINE HYDROCHLORIDE
     Indication: DEPRESSION
     Dosage: 20 MG, BID
     Route: 048
  3. FEBUXOSTAT. [Concomitant]
     Active Substance: FEBUXOSTAT
     Indication: HYPERURICAEMIA
     Dosage: 200 MG, BID
     Route: 048
  4. LEVOTHYROXINE SODIUM. [Concomitant]
     Active Substance: LEVOTHYROXINE SODIUM
     Indication: HYPOTHYROIDISM
     Dosage: 37.5 MG, QD
     Route: 048
  5. ELIQUIS [Suspect]
     Active Substance: APIXABAN
     Indication: CEREBROVASCULAR ACCIDENT PROPHYLAXIS
     Dosage: 2.5 MG, BID
     Route: 048
     Dates: start: 20150629, end: 20150731
  6. REBAMIPIDE [Concomitant]
     Active Substance: REBAMIPIDE
     Indication: GASTRIC ULCER
     Dosage: 200 MG, BID
     Route: 048
  7. PRAVASTATIN SODIUM. [Concomitant]
     Active Substance: PRAVASTATIN SODIUM
     Indication: HYPERLIPIDAEMIA
     Dosage: 5 MG, QD
     Route: 048
  8. FUROSEMIDE. [Concomitant]
     Active Substance: FUROSEMIDE
     Indication: CARDIAC FAILURE CHRONIC
     Dosage: 20 MG, QD
     Route: 048
  9. SPIRONOLACTONE. [Concomitant]
     Active Substance: SPIRONOLACTONE
     Indication: CARDIAC FAILURE CHRONIC
     Dosage: 25 MG, QD
     Route: 048
  10. TANDOSPIRONE CITRATE [Concomitant]
     Active Substance: TANDOSPIRONE CITRATE
     Indication: DEPRESSION
     Dosage: 20 MG, BID
     Route: 048
  11. NAFTOPIDIL [Concomitant]
     Active Substance: NAFTOPIDIL
     Indication: BENIGN PROSTATIC HYPERPLASIA
     Dosage: 50 MG, BID
     Route: 048
  12. ENALAPRIL MALEATE. [Concomitant]
     Active Substance: ENALAPRIL MALEATE
     Indication: CARDIAC FAILURE CHRONIC
     Dosage: 2.5 MG, QD
     Route: 048
  13. RAMELTEON [Concomitant]
     Active Substance: RAMELTEON
     Indication: DEPRESSION
     Dosage: 8 MG, QD
     Route: 048
  14. BISOPROLOL FUMARATE. [Concomitant]
     Active Substance: BISOPROLOL FUMARATE
     Indication: CARDIAC FAILURE CHRONIC
     Dosage: 1.25 MG, QD
     Route: 048

REACTIONS (9)
  - Blood pressure decreased [Fatal]
  - Respiratory disorder [Fatal]
  - Pneumonia aspiration [Fatal]
  - Rectal ulcer [Fatal]
  - Transfusion [Unknown]
  - Tachycardia [Fatal]
  - Anaemia [Fatal]
  - Cerebral infarction [Fatal]
  - Disseminated intravascular coagulation [Fatal]

NARRATIVE: CASE EVENT DATE: 20150709
